FAERS Safety Report 15007651 (Version 1)
Quarter: 2018Q2

REPORT INFORMATION
  Report Type: Report from Study
  Country: US (occurrence: US)
  Receive Date: 20180613
  Receipt Date: 20180613
  Transmission Date: 20180711
  Serious: Yes (Hospitalization, Other)
  Sender: FDA-Public Use
  Company Number: US-TESARO, INC-US-2018TSO02472

PATIENT

DRUGS (1)
  1. ZEJULA [Suspect]
     Active Substance: NIRAPARIB
     Indication: OVARIAN CANCER
     Dosage: 300 MG, QD
     Route: 048
     Dates: start: 20180420, end: 20180608

REACTIONS (5)
  - Blood count abnormal [Unknown]
  - Fatigue [Recovered/Resolved]
  - Blood creatinine increased [Recovering/Resolving]
  - Insomnia [Recovered/Resolved]
  - Urinary tract infection [Not Recovered/Not Resolved]
